FAERS Safety Report 12998918 (Version 1)
Quarter: 2016Q4

REPORT INFORMATION
  Report Type: Spontaneous
  Country: US (occurrence: US)
  Receive Date: 20161205
  Receipt Date: 20161205
  Transmission Date: 20170207
  Serious: No
  Sender: FDA-Public Use
  Company Number: US-TEVA-717036ACC

PATIENT
  Sex: Male

DRUGS (9)
  1. COPAXONE [Suspect]
     Active Substance: GLATIRAMER ACETATE
     Indication: MULTIPLE SCLEROSIS
     Route: 058
     Dates: start: 20150721
  2. DRONABINOL. [Concomitant]
     Active Substance: DRONABINOL
  3. AMITRIPTYLINE [Concomitant]
     Active Substance: AMITRIPTYLINE
  4. TOLTERODINE [Concomitant]
     Active Substance: TOLTERODINE
  5. CLONAZEPAM. [Concomitant]
     Active Substance: CLONAZEPAM
  6. BACLOFEN. [Concomitant]
     Active Substance: BACLOFEN
  7. SERTRALINE [Concomitant]
     Active Substance: SERTRALINE HYDROCHLORIDE
  8. LEVETIRACETAM. [Concomitant]
     Active Substance: LEVETIRACETAM
  9. BACLOFEN. [Concomitant]
     Active Substance: BACLOFEN

REACTIONS (2)
  - Hypoaesthesia [Unknown]
  - Drug dose omission [Unknown]

NARRATIVE: CASE EVENT DATE: 2016
